FAERS Safety Report 25031035 (Version 2)
Quarter: 2025Q1

REPORT INFORMATION
  Report Type: Spontaneous
  Country: JP (occurrence: JP)
  Receive Date: 20250303
  Receipt Date: 20250314
  Transmission Date: 20250409
  Serious: Yes (Death, Hospitalization, Other)
  Sender: TEVA
  Company Number: JP-TEVA-VS-3303530

PATIENT
  Age: 67 Year
  Sex: Male

DRUGS (8)
  1. PREDNISOLONE [Suspect]
     Active Substance: PREDNISOLONE
     Indication: Immunosuppressant drug therapy
     Route: 065
  2. PIPERACILLIN SODIUM\TAZOBACTAM SODIUM [Suspect]
     Active Substance: PIPERACILLIN SODIUM\TAZOBACTAM SODIUM
     Indication: Asymptomatic bacteriuria
     Route: 065
  3. APIXABAN [Concomitant]
     Active Substance: APIXABAN
     Indication: Atrial fibrillation
     Route: 065
  4. MEROPENEM [Suspect]
     Active Substance: MEROPENEM
     Indication: Asymptomatic bacteriuria
     Route: 065
  5. TACROLIMUS [Suspect]
     Active Substance: TACROLIMUS
     Indication: Immunosuppressant drug therapy
     Route: 065
  6. MYCOPHENOLATE MOFETIL [Suspect]
     Active Substance: MYCOPHENOLATE MOFETIL
     Indication: Immunosuppressant drug therapy
     Route: 065
  7. CEFEPIME [Suspect]
     Active Substance: CEFEPIME HYDROCHLORIDE
     Indication: Asymptomatic bacteriuria
     Route: 065
  8. CIPROFLOXACIN [Suspect]
     Active Substance: CIPROFLOXACIN
     Indication: Asymptomatic bacteriuria
     Dosage: FOR 2 WEEKS
     Route: 048

REACTIONS (10)
  - Aneurysm ruptured [Fatal]
  - Drug ineffective [Unknown]
  - Ureteric fistula [Fatal]
  - Pneumocystis jirovecii pneumonia [Unknown]
  - Cytomegalovirus viraemia [Unknown]
  - Device related infection [Unknown]
  - Septic shock [Fatal]
  - Sepsis [Fatal]
  - Pneumonia aspiration [Unknown]
  - Urinary tract infection pseudomonal [Fatal]
